FAERS Safety Report 15866778 (Version 1)
Quarter: 2019Q1

REPORT INFORMATION
  Report Type: Spontaneous
  Country: US (occurrence: US)
  Receive Date: 20190125
  Receipt Date: 20190125
  Transmission Date: 20190417
  Serious: Yes (Death)
  Sender: FDA-Public Use
  Company Number: US-PFIZER INC-2018534542

PATIENT
  Age: 62 Year
  Sex: Female

DRUGS (1)
  1. THROMBIN [Suspect]
     Active Substance: THROMBIN
     Dosage: UNK
     Route: 061

REACTIONS (5)
  - Activated partial thromboplastin time prolonged [Unknown]
  - Anti-thrombin antibody [Unknown]
  - Prothrombin time prolonged [Unknown]
  - Death [Fatal]
  - Thrombin time prolonged [Unknown]
